FAERS Safety Report 5750450-6 (Version None)
Quarter: 2008Q2

REPORT INFORMATION
  Report Type: 
  Country: None (occurrence: None)
  Receive Date: 20080528
  Receipt Date: 20071115
  Transmission Date: 20081010
  Serious: No
  Sender: FDA-Public Use
  Company Number: US-KINGPHARMUSA00001-K200701480

PATIENT

DRUGS (2)
  1. AVINZA [Suspect]
     Indication: TEMPOROMANDIBULAR JOINT SYNDROME
     Dosage: 30 MG, QD
     Route: 048
     Dates: start: 20071114, end: 20071115
  2. AVINZA [Suspect]
     Indication: OSTEOARTHRITIS

REACTIONS (5)
  - ABDOMINAL PAIN UPPER [None]
  - FATIGUE [None]
  - FORMICATION [None]
  - MALAISE [None]
  - VOMITING [None]
